FAERS Safety Report 10784232 (Version 1)
Quarter: 2015Q1

REPORT INFORMATION
  Report Type: Spontaneous
  Country: PL (occurrence: PL)
  Receive Date: 20150211
  Receipt Date: 20150211
  Transmission Date: 20150721
  Serious: Yes (Other)
  Sender: FDA-Public Use
  Company Number: PL-ROCHE-1534469

PATIENT
  Sex: Female

DRUGS (3)
  1. CALPEROS [Concomitant]
     Active Substance: CALCIUM CARBONATE
  2. VITAMIN D3 [Concomitant]
     Active Substance: CHOLECALCIFEROL
  3. BONVIVA [Suspect]
     Active Substance: IBANDRONATE SODIUM
     Indication: OSTEOPOROSIS
     Route: 065
     Dates: start: 2014

REACTIONS (4)
  - Dental pulp disorder [Unknown]
  - Pain in jaw [Unknown]
  - Inflammation [Unknown]
  - Blood calcium increased [Unknown]

NARRATIVE: CASE EVENT DATE: 201409
